FAERS Safety Report 6567325-5 (Version None)
Quarter: 2010Q1

REPORT INFORMATION
  Report Type: 
  Country: None (occurrence: None)
  Receive Date: 20100202
  Receipt Date: 20100121
  Transmission Date: 20100710
  Serious: Yes (Hospitalization, Other)
  Sender: FDA-Public Use
  Company Number: PHHY2009JP57777

PATIENT
  Sex: Female
  Weight: 52 kg

DRUGS (14)
  1. DIOVAN [Suspect]
     Indication: HYPERTENSION
     Dosage: 80 MG, QD
     Route: 048
     Dates: start: 20080514, end: 20090515
  2. FEMARA [Concomitant]
     Dosage: UNK
     Route: 048
  3. ISOSORBIDE MONONITRATE [Concomitant]
     Indication: CARDIAC FAILURE
     Dosage: 40 MG, UNK
     Route: 048
     Dates: start: 20070829
  4. LIPITOR [Concomitant]
     Indication: HYPERLIPIDAEMIA
     Dosage: 10 MG, UNK
     Route: 048
     Dates: start: 20070829
  5. LANSOPRAZOLE [Concomitant]
     Indication: GASTRIC ULCER
     Dosage: 10 MG, UNK
     Route: 048
     Dates: start: 20070214
  6. FUROSEMIDE [Concomitant]
     Indication: CARDIAC FAILURE
     Dosage: 40 MG, UNK
     Route: 048
     Dates: start: 20070608
  7. DEZOLAM [Concomitant]
     Indication: INSOMNIA
     Dosage: 0.5 MG, UNK
     Route: 048
     Dates: start: 20070214
  8. AMARYL [Concomitant]
     Dosage: UNK
     Dates: end: 20090423
  9. MAGMITT KENEI [Concomitant]
     Dosage: UNK
  10. VOGLIBOSE [Concomitant]
     Dosage: UNK
     Dates: end: 20090423
  11. NITROPEN [Concomitant]
     Indication: ANGINA PECTORIS
     Dosage: UNK
  12. RONFLEMAN [Concomitant]
     Dosage: UNK
  13. FRANDOL [Concomitant]
     Dosage: UNK
     Route: 061
  14. SPIRONOLACTONE [Concomitant]
     Dosage: 25 MG, UNK
     Route: 048
     Dates: start: 20070608, end: 20090428

REACTIONS (9)
  - BLOOD CREATININE INCREASED [None]
  - BLOOD POTASSIUM INCREASED [None]
  - BLOOD UREA INCREASED [None]
  - CONDITION AGGRAVATED [None]
  - DEHYDRATION [None]
  - DIABETES MELLITUS [None]
  - DIALYSIS [None]
  - RENAL FAILURE CHRONIC [None]
  - RENAL IMPAIRMENT [None]
